FAERS Safety Report 19595415 (Version 1)
Quarter: 2021Q3

REPORT INFORMATION
  Report Type: Report from Study
  Country: JP (occurrence: JP)
  Receive Date: 20210722
  Receipt Date: 20210722
  Transmission Date: 20211014
  Serious: Yes (Death)
  Sender: FDA-Public Use
  Company Number: JP-OTSUKA-2016_016362

PATIENT
  Sex: Female
  Weight: 61.6 kg

DRUGS (5)
  1. TOLVAPTAN [Suspect]
     Active Substance: TOLVAPTAN
     Indication: CONGENITAL CYSTIC KIDNEY DISEASE
     Dosage: 60 MG/DAY, DIVIDED 2 DOSES(EACH DOSE UNKNOWN)
     Route: 048
     Dates: start: 20151008, end: 20160303
  2. CARDENALIN [Concomitant]
     Active Substance: DOXAZOSIN MESYLATE
     Indication: PRODUCT USED FOR UNKNOWN INDICATION
     Dosage: 2 MG, QD
     Route: 048
  3. FEBURIC [Concomitant]
     Active Substance: FEBUXOSTAT
     Indication: PRODUCT USED FOR UNKNOWN INDICATION
     Dosage: 20 MG, QD
     Route: 048
  4. CRAVIT [Concomitant]
     Active Substance: LEVOFLOXACIN
     Indication: PYREXIA
     Dosage: 250 MG, QD
     Route: 048
     Dates: start: 20151105, end: 20151111
  5. REZALTAS [Concomitant]
     Active Substance: AZELNIDIPINE\OLMESARTAN MEDOXOMIL
     Indication: PRODUCT USED FOR UNKNOWN INDICATION
     Dosage: UNK
     Route: 048
     Dates: start: 20151008, end: 20161113

REACTIONS (6)
  - Atrial fibrillation [Fatal]
  - Cardiac failure [Fatal]
  - Hepatic encephalopathy [Fatal]
  - Tachycardia [Fatal]
  - Hepatic failure [Fatal]
  - Dizziness [Recovering/Resolving]

NARRATIVE: CASE EVENT DATE: 2016
